FAERS Safety Report 9121350 (Version 2)
Quarter: 2013Q1

REPORT INFORMATION
  Report Type: Spontaneous
  Country: SE (occurrence: SE)
  Receive Date: 20130225
  Receipt Date: 20130319
  Transmission Date: 20140127
  Serious: Yes (Other)
  Sender: FDA-Public Use
  Company Number: SE-ABBOTT-13P-150-1054543-00

PATIENT
  Age: 37 Year
  Sex: Female

DRUGS (1)
  1. HUMIRA [Suspect]
     Indication: RHEUMATOID ARTHRITIS
     Dates: start: 201202

REACTIONS (6)
  - Abortion induced [Unknown]
  - Injection site reaction [Recovering/Resolving]
  - Nausea [Recovered/Resolved]
  - Pyrexia [Recovered/Resolved]
  - General physical condition abnormal [Recovered/Resolved]
  - Haemorrhage [Recovered/Resolved]
